FAERS Safety Report 8537174-7 (Version None)
Quarter: 2012Q3

REPORT INFORMATION
  Report Type: 
  Country: None (occurrence: None)
  Receive Date: 20120725
  Receipt Date: 20120717
  Transmission Date: 20120928
  Serious: Yes (Other)
  Sender: FDA-Public Use
  Company Number: NZ-BRISTOL-MYERS SQUIBB COMPANY-16785131

PATIENT
  Age: 23 Year
  Sex: Male

DRUGS (4)
  1. CLOZAPINE [Suspect]
     Indication: PSYCHOTIC DISORDER
     Dosage: 1DF:200MG TABLETS
  2. ABILIFY [Suspect]
     Dosage: 1DF:ABILIFY 30MG TABLETS
  3. TETRABENAZINE [Concomitant]
     Indication: MOVEMENT DISORDER
     Dosage: 1DF:50MG TABLETS
  4. TETRABENAZINE [Concomitant]
     Indication: EXTRAPYRAMIDAL DISORDER
     Dosage: 1DF:50MG TABLETS

REACTIONS (1)
  - MYOCARDITIS [None]
